FAERS Safety Report 9613450 (Version 1)
Quarter: 2013Q4

REPORT INFORMATION
  Report Type: Spontaneous
  Country: US (occurrence: US)
  Receive Date: 20131010
  Receipt Date: 20131010
  Transmission Date: 20140711
  Serious: No
  Sender: FDA-Public Use
  Company Number: US-PFIZER INC-2013286692

PATIENT
  Age: 38 Year
  Sex: Female
  Weight: 127 kg

DRUGS (1)
  1. AZITHROMYCIN [Suspect]
     Indication: LUNG DISORDER
     Dosage: UNK, ALTERNATE DAY
     Dates: start: 201309

REACTIONS (3)
  - Chills [Not Recovered/Not Resolved]
  - Muscle spasms [Not Recovered/Not Resolved]
  - Dyskinesia [Not Recovered/Not Resolved]
